FAERS Safety Report 7119160-7 (Version None)
Quarter: 2010Q4

REPORT INFORMATION
  Report Type: 
  Country: None (occurrence: None)
  Receive Date: 20101123
  Receipt Date: 20101116
  Transmission Date: 20110411
  Serious: Yes (Hospitalization)
  Sender: FDA-Public Use
  Company Number: FR-ROCHE-743117

PATIENT
  Sex: Male

DRUGS (7)
  1. VESANOID [Suspect]
     Dosage: IN TWO INTAKES
     Route: 048
     Dates: start: 20100823, end: 20101028
  2. TAZOCILLINE [Concomitant]
  3. ACUPAN [Concomitant]
  4. TRAMADOL HCL [Concomitant]
     Dates: end: 20101031
  5. OXYCODONE HCL [Concomitant]
     Dates: end: 20101031
  6. IDARUBICIN HCL [Concomitant]
     Dates: start: 20100825
  7. IDARUBICIN HCL [Concomitant]
     Dates: start: 20101013, end: 20101015

REACTIONS (1)
  - HYPONATRAEMIA [None]
